FAERS Safety Report 8763037 (Version 4)
Quarter: 2013Q1

REPORT INFORMATION
  Report Type: Spontaneous
  Country: JP (occurrence: None)
  Receive Date: 20120827
  Receipt Date: 20121101
  Transmission Date: 20140127
  Serious: No
  Sender: FDA-Public Use
  Company Number: TPA2012A05844

PATIENT
  Age: 73 Year
  Sex: Female

DRUGS (12)
  1. FEBURIC [Suspect]
     Indication: GOUT
     Route: 048
     Dates: start: 20120721, end: 20120723
  2. FEBURIC [Suspect]
     Indication: HYPERURICAEMIA
     Route: 048
     Dates: start: 20120721, end: 20120723
  3. TAKEPRON (LANSOPRAZOLE) [Suspect]
     Indication: GASTRIC ULCER
     Route: 048
     Dates: start: 20120703, end: 20120802
  4. MUCOSOLVAN [Suspect]
     Indication: SPUTUM ABNORMAL
     Dosage: 45 MG (15 MG, 3 IN 1 D) PER ORAL
     Dates: start: 20120724, end: 20120731
  5. AMLODIN [Suspect]
     Indication: HYPERTENSION
     Route: 048
     Dates: start: 20120712, end: 20120803
  6. BAKTAR [Suspect]
     Indication: INFECTION PROPHYLAXIS
     Route: 048
     Dates: start: 20120721, end: 20120731
  7. LASIX (FUROSEMIDE) [Suspect]
     Indication: POLYURIA
     Route: 048
     Dates: start: 20120731, end: 20120802
  8. ADALAT-CR [Suspect]
     Indication: HYPERTENSION
     Route: 048
     Dates: start: 20120731, end: 20120803
  9. OLMETEC (OLMESARTAN MEDOXOMIL) [Suspect]
     Indication: HYPERTENSION
     Route: 048
     Dates: start: 20120712, end: 20120802
  10. MEDICON (DEXTROMETHORPHAN HYDROBROMIDE) [Concomitant]
     Route: 048
  11. PL (CAFFEINE, SALICYLAMIDE, PARACETAMOL, PROMETHAZINE METHYLENE DISALICYLATE) [Concomitant]
     Route: 048
     Dates: start: 20120724, end: 20120731
  12. GASTER [Suspect]
     Route: 048
     Dates: start: 20120804

REACTIONS (2)
  - Rash [None]
  - Drug reaction with eosinophilia and systemic symptoms [None]
